FAERS Safety Report 9539232 (Version 2)
Quarter: 2013Q3

REPORT INFORMATION
  Report Type: Spontaneous
  Country: GB (occurrence: GB)
  Receive Date: 20130920
  Receipt Date: 20130920
  Transmission Date: 20140515
  Serious: Yes (Hospitalization)
  Sender: FDA-Public Use
  Company Number: GB-009507513-1202USA03411

PATIENT
  Age: 71 Year
  Sex: Male
  Weight: 79 kg

DRUGS (12)
  1. DECADRON TABLETS [Suspect]
     Indication: PLASMA CELL MYELOMA
     Dosage: UNKNOWN DAILY DOSE, BUT 20 MG DOSE REPORTED
     Route: 048
     Dates: start: 20110607, end: 20111121
  2. VELCADE [Suspect]
     Indication: PLASMA CELL MYELOMA
     Dosage: 1.8 MG, WEEKLY
     Route: 058
     Dates: start: 20110607, end: 20111121
  3. OMEPRAZOLE [Concomitant]
     Indication: PROPHYLAXIS
     Dosage: 40 MG, UNK
     Route: 048
     Dates: start: 20110607
  4. ACYCLOVIR [Concomitant]
     Indication: PROPHYLAXIS
     Dosage: 800 MG, UNK
     Route: 048
     Dates: start: 20110607
  5. ASPIRIN [Concomitant]
     Indication: PROPHYLAXIS
     Dosage: 75 MG, UNK
     Route: 048
  6. CORSODYL [Concomitant]
     Indication: PROPHYLAXIS
     Dosage: 40 ML, UNK
     Route: 048
     Dates: start: 20110706
  7. DISOPYRAMIDE [Concomitant]
     Indication: ARRHYTHMIA
     Dosage: 300 MG, UNK
     Route: 048
  8. MICONAZOLE [Concomitant]
     Indication: ORAL PAIN
     Dosage: UNK
     Dates: start: 2011
  9. NYSTATIN [Concomitant]
     Indication: PROPHYLAXIS
     Dosage: 4 ML, UNK
     Route: 048
     Dates: start: 20110607
  10. ONDANSETRON [Concomitant]
     Dosage: 8 MG, UNK
     Route: 048
     Dates: start: 20110607
  11. SERETIDE [Concomitant]
     Indication: ASTHMA
  12. DOMPERIDONE [Suspect]
     Dosage: UNK
     Route: 048
     Dates: start: 20110607

REACTIONS (3)
  - Pyrexia [Recovered/Resolved]
  - Infection [Unknown]
  - Off label use [Unknown]
